FAERS Safety Report 6787963-4 (Version None)
Quarter: 2010Q2

REPORT INFORMATION
  Report Type: 
  Country: None (occurrence: None)
  Receive Date: 20100623
  Receipt Date: 20080124
  Transmission Date: 20101027
  Serious: No
  Sender: FDA-Public Use
  Company Number: US-PFIZER INC-2007107112

PATIENT
  Sex: Male
  Weight: 81.19 kg

DRUGS (5)
  1. COLESTID [Suspect]
     Indication: BLOOD CHOLESTEROL
     Route: 048
     Dates: start: 20070401
  2. COLESTID [Suspect]
     Indication: BLOOD CHOLESTEROL
     Route: 048
     Dates: start: 20070101
  3. ACETYLSALICYLIC ACID [Concomitant]
  4. VITAMINS [Concomitant]
  5. CENTRUM SILVER [Concomitant]

REACTIONS (3)
  - BLOOD CHOLESTEROL INCREASED [None]
  - DYSPHAGIA [None]
  - PRODUCT QUALITY ISSUE [None]
